FAERS Safety Report 14314195 (Version 1)
Quarter: 2017Q4

REPORT INFORMATION
  Report Type: Spontaneous
  Country: US (occurrence: US)
  Receive Date: 20171221
  Receipt Date: 20171221
  Transmission Date: 20180321
  Serious: Yes (Death, Hospitalization)
  Sender: FDA-Public Use
  Company Number: None

PATIENT
  Age: 30 Year
  Sex: Female
  Weight: 55.4 kg

DRUGS (7)
  1. CYCLOPHOSPHAMIDE. [Suspect]
     Active Substance: CYCLOPHOSPHAMIDE
     Dates: end: 20171104
  2. CYTARABINE. [Suspect]
     Active Substance: CYTARABINE
     Dates: end: 20171114
  3. ONCASPAR [Suspect]
     Active Substance: PEGASPARGASE
     Dates: end: 20171118
  4. PREDNISONE. [Suspect]
     Active Substance: PREDNISONE
     Dates: end: 20170905
  5. MERCAPTOPURINE. [Suspect]
     Active Substance: MERCAPTOPURINE
     Dates: end: 20171117
  6. VINCRISTINE SULFATE. [Suspect]
     Active Substance: VINCRISTINE SULFATE
     Dates: end: 20171125
  7. METHOTREXATE. [Suspect]
     Active Substance: METHOTREXATE
     Dates: end: 20170829

REACTIONS (11)
  - Fungal infection [None]
  - Haemodynamic instability [None]
  - Encephalopathy [None]
  - Condition aggravated [None]
  - Serum ferritin increased [None]
  - Histiocytosis haematophagic [None]
  - Pulmonary mass [None]
  - Lung infection [None]
  - Coagulopathy [None]
  - Venoocclusive disease [None]
  - Vein disorder [None]

NARRATIVE: CASE EVENT DATE: 20171214
